FAERS Safety Report 7937725-7 (Version None)
Quarter: 2011Q4

REPORT INFORMATION
  Report Type: 
  Country: None (occurrence: None)
  Receive Date: 20111123
  Receipt Date: 20111116
  Transmission Date: 20120403
  Serious: Yes (Other)
  Sender: FDA-Public Use
  Company Number: PHEH2010US02434

PATIENT
  Sex: Female
  Weight: 45.351 kg

DRUGS (4)
  1. AMOXICILLIN [Concomitant]
     Dosage: 500 MG, BID
     Dates: start: 20081230
  2. FASLODEX [Concomitant]
  3. ZOMETA [Suspect]
     Indication: BREAST CANCER METASTATIC
     Dosage: 4 MG, QMO
     Route: 042
     Dates: start: 20031117
  4. AROMASIN [Concomitant]

REACTIONS (34)
  - OSTEONECROSIS OF JAW [None]
  - SCOLIOSIS [None]
  - WEIGHT DECREASED [None]
  - ACTIVITIES OF DAILY LIVING IMPAIRED [None]
  - HAEMORRHAGE [None]
  - ORAL DISCOMFORT [None]
  - METASTASES TO BONE [None]
  - PRIMARY SEQUESTRUM [None]
  - EXPOSED BONE IN JAW [None]
  - OSTEOARTHRITIS [None]
  - INJURY [None]
  - SWELLING FACE [None]
  - CHRONIC SINUSITIS [None]
  - NEUROPATHY PERIPHERAL [None]
  - DYSGEUSIA [None]
  - TRISMUS [None]
  - GAIT DISTURBANCE [None]
  - SINUSITIS [None]
  - PHYSICAL DISABILITY [None]
  - PARANASAL SINUS HYPERSECRETION [None]
  - METASTASES TO SPINE [None]
  - PARANASAL CYST [None]
  - FISTULA [None]
  - PAIN [None]
  - BACTERIAL DISEASE CARRIER [None]
  - PARAESTHESIA [None]
  - DYSAESTHESIA [None]
  - METASTASES TO PELVIS [None]
  - INTERVERTEBRAL DISC PROTRUSION [None]
  - AORTIC ARTERIOSCLEROSIS [None]
  - GINGIVAL SWELLING [None]
  - ANXIETY [None]
  - ANHEDONIA [None]
  - PAIN IN JAW [None]
